FAERS Safety Report 9996015 (Version 1)
Quarter: 2014Q1

REPORT INFORMATION
  Report Type: Spontaneous
  Country: US (occurrence: None)
  Receive Date: 20140221
  Receipt Date: 20140221
  Transmission Date: 20141002
  Serious: Yes (Other)
  Sender: FDA-Public Use
  Company Number: 1000051155

PATIENT
  Sex: Female

DRUGS (4)
  1. TUDORZA PRESSAIR [Suspect]
     Indication: CHRONIC OBSTRUCTIVE PULMONARY DISEASE
     Route: 055
     Dates: start: 20131104, end: 20131105
  2. TUDORZA PRESSAIR [Suspect]
     Indication: ASTHMA
     Route: 055
     Dates: start: 20131104, end: 20131105
  3. MONTELUKAST [Suspect]
     Dates: start: 20131104, end: 20131105
  4. ALBUTEROL [Suspect]

REACTIONS (3)
  - Headache [None]
  - Dyspepsia [None]
  - Off label use [None]
